FAERS Safety Report 7926679-5 (Version None)
Quarter: 2011Q4

REPORT INFORMATION
  Report Type: 
  Country: None (occurrence: None)
  Receive Date: 20111118
  Receipt Date: 20111114
  Transmission Date: 20120403
  Serious: No
  Sender: FDA-Public Use
  Company Number: US-PFIZER INC-2011279437

PATIENT
  Sex: Female

DRUGS (1)
  1. FLECTOR [Suspect]
     Indication: BACK PAIN
     Dosage: UNK

REACTIONS (5)
  - HEADACHE [None]
  - NAUSEA [None]
  - BLOOD PRESSURE INCREASED [None]
  - COLD SWEAT [None]
  - SOMNOLENCE [None]
